FAERS Safety Report 23979137 (Version 1)
Quarter: 2024Q2

REPORT INFORMATION
  Report Type: Report from Study
  Country: CA (occurrence: CA)
  Receive Date: 20240615
  Receipt Date: 20240615
  Transmission Date: 20240716
  Serious: Yes (Other)
  Sender: FDA-Public Use
  Company Number: CA-ABBVIE-5799307

PATIENT
  Sex: Male

DRUGS (1)
  1. SKYRIZI [Suspect]
     Active Substance: RISANKIZUMAB-RZAA
     Indication: Crohn^s disease
     Dosage: DOSE: 360 MG S/C VIA OBI Q8W?LDD: JUNE 5 OR 6 2024
     Route: 058
     Dates: start: 20230717

REACTIONS (4)
  - Surgery [Unknown]
  - Incision site ulcer [Unknown]
  - Night sweats [Unknown]
  - Incisional hernia [Unknown]

NARRATIVE: CASE EVENT DATE: 20240610
